FAERS Safety Report 25664071 (Version 2)
Quarter: 2025Q3

REPORT INFORMATION
  Report Type: Spontaneous
  Country: IR (occurrence: IR)
  Receive Date: 20250811
  Receipt Date: 20250818
  Transmission Date: 20251021
  Serious: Yes (Hospitalization, Disabling)
  Sender: MACLEODS
  Company Number: IR-MACLEODS PHARMA-MAC2025054550

PATIENT

DRUGS (2)
  1. TRIAMCINOLONE [Suspect]
     Active Substance: TRIAMCINOLONE
     Indication: Vitiligo
     Route: 030
  2. PIMECROLIMUS [Concomitant]
     Active Substance: PIMECROLIMUS
     Indication: Vitiligo
     Route: 065

REACTIONS (2)
  - Embolia cutis medicamentosa [Recovered/Resolved]
  - Thrombocytosis [Unknown]
